FAERS Safety Report 9219149 (Version 2)
Quarter: 2013Q2

REPORT INFORMATION
  Report Type: Spontaneous
  Country: US (occurrence: None)
  Receive Date: 20130404
  Receipt Date: 20130417
  Transmission Date: 20140414
  Serious: Yes (Life-Threatening, Hospitalization, Other)
  Sender: FDA-Public Use
  Company Number: AUR-APL-2013-02716

PATIENT
  Age: 63 Year
  Sex: Female

DRUGS (11)
  1. LISINOPRIL [Suspect]
     Indication: PRODUCT USED FOR UNKNOWN INDICATION
     Dates: start: 201207
  2. SUNITINIB MALATE [Suspect]
     Indication: OVARIAN EPITHELIAL CANCER
     Dosage: 37.5 GM, 1 D, ORAL
     Route: 048
     Dates: start: 20130110, end: 20130305
  3. SYNTHROID (LEVOTHYROXINE SODIUM) [Concomitant]
  4. AMARYL (GLIMEPIRIDE) [Concomitant]
  5. LIPITOR (ATORVASTATIN CALCIUM) [Concomitant]
  6. CLARITIN (GLICLAZIDE) [Concomitant]
  7. METFORMIN (METFORMIN) [Concomitant]
  8. MAGNESIUM OXIDE (MAGNESIUM OXIDE) [Concomitant]
  9. EFFEXOR (VENLAFAXINE) [Concomitant]
  10. PROTONIX (PANTOPRAZOLE) [Concomitant]
  11. AMAREL (GLIMEPIRIDE) [Concomitant]

REACTIONS (5)
  - Hypersensitivity [None]
  - Dysphagia [None]
  - Swollen tongue [None]
  - Angioedema [None]
  - Hyperglycaemia [None]
